FAERS Safety Report 6047813-0 (Version None)
Quarter: 2009Q1

REPORT INFORMATION
  Report Type: 
  Country: None (occurrence: None)
  Receive Date: 20090123
  Receipt Date: 20090112
  Transmission Date: 20090719
  Serious: Yes (Other)
  Sender: FDA-Public Use
  Company Number: US-PFIZER INC-2009155188

PATIENT
  Sex: Male
  Weight: 113.39 kg

DRUGS (1)
  1. VIAGRA [Suspect]
     Indication: ERECTILE DYSFUNCTION

REACTIONS (4)
  - EYE DISORDER [None]
  - EYE MOVEMENT DISORDER [None]
  - METAMORPHOPSIA [None]
  - VISION BLURRED [None]
